FAERS Safety Report 11191099 (Version 1)
Quarter: 2015Q2

REPORT INFORMATION
  Report Type: Spontaneous
  Country: US (occurrence: US)
  Receive Date: 20150615
  Receipt Date: 20150615
  Transmission Date: 20150821
  Serious: No
  Sender: FDA-Public Use
  Company Number: US-ENDO PHARMACEUTICALS INC.-NYST20150002

PATIENT
  Sex: Female

DRUGS (1)
  1. NYSTATIN CREAM [Suspect]
     Active Substance: NYSTATIN
     Indication: INFECTION
     Route: 061

REACTIONS (4)
  - Application site pain [Unknown]
  - Product physical issue [Unknown]
  - Drug effect decreased [Unknown]
  - Application site discomfort [Unknown]
